FAERS Safety Report 6681962-9 (Version None)
Quarter: 2010Q1

REPORT INFORMATION
  Report Type: 
  Country: None (occurrence: None)
  Receive Date: 20100330
  Receipt Date: 20100315
  Transmission Date: 20100710
  Serious: Yes (Death, Other)
  Sender: FDA-Public Use
  Company Number: AEUSA201000077

PATIENT
  Age: 55 Year
  Sex: Male

DRUGS (6)
  1. IMMUNE GLOBULIN (HUMAN) [Suspect]
     Indication: SECONDARY IMMUNODEFICIENCY
     Dosage: 30 GM; IV
     Route: 042
  2. LEVOFLOXACIN [Concomitant]
  3. ACETAMINOPHEN [Concomitant]
  4. HYDROCORTISONE [Concomitant]
  5. BENADRYL [Concomitant]
  6. CHLORAMBUCIL [Concomitant]

REACTIONS (14)
  - CONVULSION [None]
  - DECREASED APPETITE [None]
  - DYSPNOEA [None]
  - EMBOLIC STROKE [None]
  - FEBRILE NEUTROPENIA [None]
  - HAEMOGLOBIN DECREASED [None]
  - HEADACHE [None]
  - HYPOGAMMAGLOBULINAEMIA [None]
  - INFECTION [None]
  - INTRACARDIAC THROMBUS [None]
  - MENTAL STATUS CHANGES [None]
  - MYOCARDIAL INFARCTION [None]
  - SPLENOMEGALY [None]
  - VENTRICULAR HYPOKINESIA [None]
